FAERS Safety Report 12477212 (Version 1)
Quarter: 2016Q2

REPORT INFORMATION
  Report Type: Spontaneous
  Country: FI (occurrence: FI)
  Receive Date: 20160617
  Receipt Date: 20160617
  Transmission Date: 20160815
  Serious: Yes (Disabling)
  Sender: FDA-Public Use
  Company Number: FI-WATSON-2016-11810

PATIENT
  Age: 76 Year
  Sex: Female

DRUGS (2)
  1. APOCYCLIN [Suspect]
     Active Substance: TETRACYCLINE HYDROCHLORIDE
     Dosage: 1 DF, BID
     Route: 048
     Dates: start: 20160115
  2. APOCYCLIN [Suspect]
     Active Substance: TETRACYCLINE HYDROCHLORIDE
     Indication: SKIN ULCER
     Dosage: 1 DF, DAILY
     Route: 048
     Dates: end: 20160224

REACTIONS (2)
  - Pain in extremity [Recovered/Resolved with Sequelae]
  - Muscular weakness [Recovered/Resolved with Sequelae]

NARRATIVE: CASE EVENT DATE: 201601
